FAERS Safety Report 19519961 (Version 1)
Quarter: 2021Q3

REPORT INFORMATION
  Report Type: Report from Study
  Country: DE (occurrence: DE)
  Receive Date: 20210712
  Receipt Date: 20210712
  Transmission Date: 20211014
  Serious: Yes (Hospitalization, Other)
  Sender: FDA-Public Use
  Company Number: DE-TAKEDA-DE201719731

PATIENT
  Age: 52 Year
  Sex: Female
  Weight: 73 kg

DRUGS (12)
  1. TEDUGLUTIDE [Suspect]
     Active Substance: TEDUGLUTIDE
     Indication: SHORT-BOWEL SYNDROME
     Dosage: 0.05 MG/KG, 1X/DAY:QD
     Route: 065
     Dates: start: 20160412
  2. CIPROFLOXACIN. [Concomitant]
     Active Substance: CIPROFLOXACIN
     Indication: VASCULAR DEVICE INFECTION
     Dosage: 999 UNK
     Route: 042
     Dates: start: 201807, end: 2018
  3. FOLIC ACID. [Concomitant]
     Active Substance: FOLIC ACID
     Indication: FOLATE DEFICIENCY
     Dosage: 5 MILLIGRAM, QD
     Route: 048
     Dates: start: 201807
  4. SELENASE [Concomitant]
     Indication: ENZYME SUPPLEMENTATION
     Dosage: 999 UNK
     Route: 065
     Dates: start: 201812
  5. CALCIUM CARBONATE. [Concomitant]
     Active Substance: CALCIUM CARBONATE
     Indication: MINERAL SUPPLEMENTATION
     Dosage: UNK
     Route: 065
  6. TEDUGLUTIDE [Suspect]
     Active Substance: TEDUGLUTIDE
     Indication: SHORT-BOWEL SYNDROME
     Dosage: 0.05 MG/KG, 1X/DAY:QD
     Route: 065
     Dates: start: 20160412
  7. METOCLOPRAMIDE. [Concomitant]
     Active Substance: METOCLOPRAMIDE
     Indication: PYLORIC STENOSIS
     Dosage: UNK
     Route: 065
  8. TEDUGLUTIDE [Suspect]
     Active Substance: TEDUGLUTIDE
     Indication: SHORT-BOWEL SYNDROME
     Dosage: 0.05 MG/KG, 1X/DAY:QD
     Route: 065
     Dates: start: 20160412
  9. TEDUGLUTIDE [Suspect]
     Active Substance: TEDUGLUTIDE
     Indication: SHORT-BOWEL SYNDROME
     Dosage: 0.05 MG/KG, 1X/DAY:QD
     Route: 065
     Dates: start: 20160412
  10. SELENASE [Concomitant]
     Indication: SELENIUM DEFICIENCY
  11. MAGNESIUM [Concomitant]
     Active Substance: MAGNESIUM
     Indication: MINERAL SUPPLEMENTATION
     Dosage: UNK
     Route: 065
  12. TORSEMIDE. [Concomitant]
     Active Substance: TORSEMIDE
     Indication: OEDEMA
     Dosage: 999 UNK
     Route: 065
     Dates: start: 201807, end: 2018

REACTIONS (2)
  - Sepsis [Recovered/Resolved]
  - Vascular device infection [Unknown]

NARRATIVE: CASE EVENT DATE: 201708
